FAERS Safety Report 7700677-9 (Version None)
Quarter: 2011Q3

REPORT INFORMATION
  Report Type: 
  Country: None (occurrence: None)
  Receive Date: 20110822
  Receipt Date: 20110811
  Transmission Date: 20111222
  Serious: Yes (Other)
  Sender: FDA-Public Use
  Company Number: US-AMGEN-USASP2011032952

PATIENT
  Age: 66 Year
  Sex: Female

DRUGS (1)
  1. ENBREL [Suspect]
     Indication: RHEUMATOID ARTHRITIS
     Dosage: 50 MG, QWK
     Dates: start: 20050301

REACTIONS (13)
  - ARTHRALGIA [None]
  - LETHARGY [None]
  - BACK PAIN [None]
  - DRUG HYPERSENSITIVITY [None]
  - NIGHT SWEATS [None]
  - ASTHENIA [None]
  - GASTROOESOPHAGEAL REFLUX DISEASE [None]
  - DYSPNOEA [None]
  - PULMONARY CONGESTION [None]
  - COUGH [None]
  - CHEST PAIN [None]
  - HIATUS HERNIA [None]
  - TENDON RUPTURE [None]
